FAERS Safety Report 12289488 (Version 1)
Quarter: 2016Q2

REPORT INFORMATION
  Report Type: Spontaneous
  Country: US (occurrence: US)
  Receive Date: 20160421
  Receipt Date: 20160421
  Transmission Date: 20160815
  Serious: Yes (Other)
  Sender: FDA-Public Use
  Company Number: US-ALVOGEN-2015-ALVOGEN-018808

PATIENT
  Sex: Female
  Weight: 70 kg

DRUGS (5)
  1. GABAPENTIN. [Concomitant]
     Active Substance: GABAPENTIN
     Indication: BIPOLAR DISORDER
     Route: 048
  2. NO DRUG NAME [Concomitant]
     Indication: BIPOLAR DISORDER
  3. GABAPENTIN. [Concomitant]
     Active Substance: GABAPENTIN
     Indication: BIPOLAR DISORDER
     Route: 048
     Dates: start: 201404
  4. PRAZOSIN [Concomitant]
     Active Substance: PRAZOSIN
     Indication: POST-TRAUMATIC STRESS DISORDER
     Route: 048
  5. ATENOLOL. [Suspect]
     Active Substance: ATENOLOL
     Indication: TACHYCARDIA
     Route: 048
     Dates: start: 2004

REACTIONS (4)
  - Feeling abnormal [Unknown]
  - Drug withdrawal syndrome [Unknown]
  - Heart rate irregular [Unknown]
  - Heart rate increased [Unknown]
